FAERS Safety Report 9804362 (Version 2)
Quarter: 2014Q1

REPORT INFORMATION
  Report Type: Spontaneous
  Country: IT (occurrence: None)
  Receive Date: 20140106
  Receipt Date: 20140226
  Transmission Date: 20141002
  Serious: Yes (Hospitalization)
  Sender: FDA-Public Use
  Company Number: AUR-APL-2013-10911

PATIENT
  Age: 83 Year
  Sex: Female

DRUGS (4)
  1. CARVEDILOL (CARVEDILOL) [Suspect]
     Indication: ATRIAL FIBRILLATION
     Dosage: (6.25 MG, 1 D), ORAL
     Route: 048
     Dates: start: 20100101, end: 20131120
  2. LANOXIN (DIGOXIN) [Suspect]
     Indication: ATRIAL FIBRILLATION
     Dosage: ORAL
     Route: 048
     Dates: start: 20100101, end: 20131120
  3. COUMADIN (WARFARIN SODIUM) [Concomitant]
  4. LASIX (FUROSEMIDE) [Concomitant]

REACTIONS (2)
  - Nodal arrhythmia [None]
  - Atrial fibrillation [None]
